FAERS Safety Report 4687351-0 (Version None)
Quarter: 2005Q2

REPORT INFORMATION
  Report Type: 
  Country: None (occurrence: None)
  Receive Date: 20050526
  Receipt Date: 20050526
  Transmission Date: 20051028
  Serious: Yes (Death, Hospitalization, Other)
  Sender: FDA-Public Use
  Company Number: 2004043537

PATIENT
  Age: 55 Year
  Sex: Male

DRUGS (12)
  1. NEURONTIN [Suspect]
     Indication: NEUROPATHY PERIPHERAL
     Dosage: 600 MG (300 MG, 2 IN 1 D), ORAL
     Route: 048
     Dates: start: 19960930
  2. NEURONTIN [Suspect]
     Indication: POLYNEUROPATHY IDIOPATHIC PROGRESSIVE
     Dosage: 600 MG (300 MG, 2 IN 1 D), ORAL
     Route: 048
     Dates: start: 19960930
  3. NEURONTIN [Suspect]
     Indication: RESTLESS LEGS SYNDROME
     Dosage: 600 MG (300 MG, 2 IN 1 D), ORAL
     Route: 048
     Dates: start: 19960930
  4. MIDAZOLAM HCL [Suspect]
     Indication: ILL-DEFINED DISORDER
     Dosage: INTRAVENOUS
     Route: 042
     Dates: start: 20020618, end: 20020618
  5. AMBIEN [Concomitant]
  6. IBUPROFEN [Concomitant]
  7. KLONOPIN [Concomitant]
  8. REMERON [Concomitant]
  9. ULTRAM [Suspect]
     Indication: PAIN
     Dosage: ORAL
     Route: 048
  10. CITALOPRAM [Suspect]
     Indication: ILL-DEFINED DISORDER
     Dates: start: 20000101
  11. PANCURONIUM [Suspect]
     Indication: ILL-DEFINED DISORDER
     Dosage: INTRAVENOUS
     Route: 042
     Dates: start: 20020618, end: 20020618
  12. ALL OTHER THERAPEUTIC PRODUCTS [Suspect]
     Indication: ILL-DEFINED DISORDER

REACTIONS (19)
  - ANXIETY [None]
  - COGNITIVE DETERIORATION [None]
  - COMPLETED SUICIDE [None]
  - DEPRESSED LEVEL OF CONSCIOUSNESS [None]
  - FATIGUE [None]
  - FEELING JITTERY [None]
  - HEAD DISCOMFORT [None]
  - INTENTIONAL MISUSE [None]
  - LIBIDO DECREASED [None]
  - MAJOR DEPRESSION [None]
  - MENTAL DISORDER [None]
  - PAIN [None]
  - PAIN IN EXTREMITY [None]
  - PARAESTHESIA [None]
  - RESPIRATORY DISTRESS [None]
  - RESTLESSNESS [None]
  - SLEEP DISORDER [None]
  - SLUGGISHNESS [None]
  - SOMNOLENCE [None]
